FAERS Safety Report 13138100 (Version 1)
Quarter: 2017Q1

REPORT INFORMATION
  Report Type: Spontaneous
  Country: US (occurrence: US)
  Receive Date: 20170123
  Receipt Date: 20170123
  Transmission Date: 20170428
  Serious: No
  Sender: FDA-Public Use
  Company Number: US-UNITED THERAPEUTICS-UNT-2016-009410

PATIENT
  Age: 6 Year
  Sex: Male

DRUGS (6)
  1. ORENITRAM [Suspect]
     Active Substance: TREPROSTINIL
     Dosage: 1 MG, TID
     Route: 048
     Dates: start: 20160605, end: 20160605
  2. ORENITRAM [Suspect]
     Active Substance: TREPROSTINIL
     Dosage: 2.125 MG IN THE AM, 2.25 MG MIDDAY AND PM, TID
     Route: 048
     Dates: start: 20160609
  3. ORENITRAM [Suspect]
     Active Substance: TREPROSTINIL
     Indication: PULMONARY ARTERIAL HYPERTENSION
     Dosage: 2.625 MG, TID
     Route: 048
     Dates: start: 20160530, end: 20160601
  4. ORENITRAM [Suspect]
     Active Substance: TREPROSTINIL
     Dosage: 2 MG, TID
     Route: 048
     Dates: start: 20160606
  5. AMBRISENTAN [Suspect]
     Active Substance: AMBRISENTAN
     Indication: PULMONARY ARTERIAL HYPERTENSION
     Dosage: 5 MG, QD
     Route: 065
     Dates: start: 20160226
  6. ORENITRAM [Suspect]
     Active Substance: TREPROSTINIL
     Dosage: 2.375 MG, TID
     Route: 048
     Dates: start: 20160601, end: 20160605

REACTIONS (5)
  - Headache [Recovered/Resolved]
  - Vomiting [Recovered/Resolved]
  - Viral infection [Recovered/Resolved]
  - Pain in extremity [Recovered/Resolved]
  - Pyrexia [Recovered/Resolved]

NARRATIVE: CASE EVENT DATE: 20160601
